FAERS Safety Report 25518761 (Version 2)
Quarter: 2025Q3

REPORT INFORMATION
  Report Type: Report from Study
  Country: US (occurrence: US)
  Receive Date: 20250704
  Receipt Date: 20250803
  Transmission Date: 20251020
  Serious: Yes (Other)
  Sender: ALEXION PHARMACEUTICALS
  Company Number: US-ASTRAZENECA-202506USA026557US

PATIENT
  Age: 53 Year
  Sex: Female

DRUGS (2)
  1. STRENSIQ [Suspect]
     Active Substance: ASFOTASE ALFA
     Indication: Phosphorus metabolism disorder
     Dosage: 2 MILLIGRAM/KILOGRAM, TIW
     Route: 065
  2. VITAMIN B6 [Suspect]
     Active Substance: PYRIDOXINE HYDROCHLORIDE
     Route: 065

REACTIONS (9)
  - PASH syndrome [Unknown]
  - Retinal tear [Unknown]
  - Joint swelling [Unknown]
  - Injection site pain [Unknown]
  - Radiculopathy [Unknown]
  - Peripheral swelling [Unknown]
  - Ligament calcification [Unknown]
  - Arthritis [Unknown]
  - Hypersomnia [Unknown]

NARRATIVE: CASE EVENT DATE: 20250219
